FAERS Safety Report 4402296-9 (Version None)
Quarter: 2004Q3

REPORT INFORMATION
  Report Type: 
  Country: None (occurrence: None)
  Receive Date: 20040720
  Receipt Date: 20040629
  Transmission Date: 20050211
  Serious: Yes (Other)
  Sender: FDA-Public Use
  Company Number: NL-GLAXOSMITHKLINE-B0338108A

PATIENT
  Age: 57 Year
  Sex: Male

DRUGS (2)
  1. AMOXICILLIN + CLAVULANIC ACID [Suspect]
     Indication: ACUTE SINUSITIS
     Dosage: 1TAB THREE TIMES PER DAY
     Route: 048
     Dates: start: 20040604, end: 20040607
  2. XYLOMETAZOLINE [Concomitant]
     Dates: start: 20040604, end: 20040610

REACTIONS (8)
  - ABDOMINAL PAIN UPPER [None]
  - CHILLS [None]
  - CHROMATURIA [None]
  - FAECES PALE [None]
  - HEPATIC ENZYME INCREASED [None]
  - HEPATITIS CHOLESTATIC [None]
  - JAUNDICE [None]
  - PRURITUS [None]
